FAERS Safety Report 11018561 (Version 2)
Quarter: 2015Q2

REPORT INFORMATION
  Report Type: Spontaneous
  Country: US (occurrence: US)
  Receive Date: 20150412
  Receipt Date: 20150524
  Transmission Date: 20150821
  Serious: Yes (Death)
  Sender: FDA-Public Use
  Company Number: US-JNJFOC-20130608430

PATIENT

DRUGS (3)
  1. DEXRAZOXANE. [Suspect]
     Active Substance: DEXRAZOXANE
     Indication: CARDIOVASCULAR EVENT PROPHYLAXIS
     Dosage: 2 DOSES DURING REMISSION INDUCTION (UP TO 15 MIN)
     Route: 040
  2. DOXORUBICIN [Suspect]
     Active Substance: DOXORUBICIN
     Indication: ACUTE LYMPHOCYTIC LEUKAEMIA
     Dosage: 2 DOSES DURING REMISSION INDUCTION (UP TO 15 MIN)
     Route: 042
  3. DOXORUBICIN [Suspect]
     Active Substance: DOXORUBICIN
     Indication: ACUTE LYMPHOCYTIC LEUKAEMIA
     Dosage: 8 FURTHER DOSES EVERY 3 WEEKS DURING INTENSIFICATION AFTER REMISSION (UP TO 15 MIN)
     Route: 042

REACTIONS (2)
  - Product use issue [Unknown]
  - Acute lymphocytic leukaemia (in remission) [Fatal]
